FAERS Safety Report 6644250-2 (Version None)
Quarter: 2010Q1

REPORT INFORMATION
  Report Type: 
  Country: None (occurrence: None)
  Receive Date: 20100304
  Receipt Date: 20090402
  Transmission Date: 20100710
  Serious: Yes (Other)
  Sender: FDA-Public Use
  Company Number: US-002712

PATIENT
  Age: 62 Year
  Sex: Female
  Weight: 68 kg

DRUGS (8)
  1. ISOVUE-300 [Suspect]
     Indication: ABDOMINAL PAIN UPPER
     Dosage: 70ML QD INTRAVENOUS
     Route: 042
     Dates: start: 20090331, end: 20090331
  2. ISOVUE-300 [Suspect]
     Indication: COMPUTERISED TOMOGRAM ABDOMEN
     Dosage: 70ML QD INTRAVENOUS
     Route: 042
     Dates: start: 20090331, end: 20090331
  3. ASPIRIN [Concomitant]
  4. NORVASC [Concomitant]
  5. OMEPRAZOLE [Concomitant]
  6. SIMVASTATIN [Concomitant]
  7. TOPROL-XL [Concomitant]
  8. CALCIUM CARBONATE [Concomitant]

REACTIONS (1)
  - HYPERSENSITIVITY [None]
